FAERS Safety Report 21921060 (Version 1)
Quarter: 2023Q1

REPORT INFORMATION
  Report Type: Spontaneous
  Country: CZ (occurrence: CZ)
  Receive Date: 20230127
  Receipt Date: 20230127
  Transmission Date: 20230418
  Serious: Yes (Hospitalization)
  Sender: FDA-Public Use
  Company Number: CZ-MYLANLABS-2023M1009774

PATIENT
  Age: 65 Year
  Sex: Female

DRUGS (17)
  1. ALPRAZOLAM [Suspect]
     Active Substance: ALPRAZOLAM
     Indication: Sleep disorder
     Dosage: UNK
     Route: 065
  2. ALPRAZOLAM [Suspect]
     Active Substance: ALPRAZOLAM
     Indication: Depression
  3. MIDAZOLAM [Suspect]
     Active Substance: MIDAZOLAM
     Indication: Anaesthetic premedication
     Dosage: 3 MILLIGRAM; INTRAVENOUS (NOT SPECIFIED)
     Route: 042
  4. ATROPINE [Suspect]
     Active Substance: ATROPINE
     Indication: Anaesthetic premedication
     Dosage: 0.5 MILLIGRAM
     Route: 030
  5. PROPOFOL [Suspect]
     Active Substance: PROPOFOL
     Indication: Anaesthesia
     Dosage: 150 MILLIGRAM; INTRAVENOUS (NOT SPECIFIED)
     Route: 042
  6. SUFENTANIL [Suspect]
     Active Substance: SUFENTANIL
     Indication: Anaesthesia
     Dosage: 20 MICROGRAM; AT THE START OF ANAESTHESIA; INTRAVENOUS (NOT SPECIFIED)
     Route: 042
  7. SUFENTANIL [Suspect]
     Active Substance: SUFENTANIL
     Dosage: 20 MICROGRAM, QH; CONTINUOUS (DISCONTINUED 30MIN BEFORE END OF SURGERY)
     Route: 042
  8. ROCURONIUM [Suspect]
     Active Substance: ROCURONIUM BROMIDE
     Indication: Anaesthesia
     Dosage: 40 MILLIGRAM; AT THE START OF ANAESTHESIA
     Route: 065
  9. ROCURONIUM [Suspect]
     Active Substance: ROCURONIUM BROMIDE
     Dosage: 55 MILLIGRAM; LAST DOSE OF 10MG ADMINISTERED 35MIN BEFORE END OF SURGERY
     Route: 065
  10. ISOFLURANE [Suspect]
     Active Substance: ISOFLURANE
     Indication: Anaesthesia
     Dosage: UNK; 0.8-1.2 VOL. %; RESPIRATORY (INHALATION)
     Route: 055
  11. MESALAMINE [Concomitant]
     Active Substance: MESALAMINE
     Indication: Crohn^s disease
     Dosage: UNK
     Route: 065
  12. ESCITALOPRAM [Concomitant]
     Active Substance: ESCITALOPRAM OXALATE
     Indication: Depression
     Dosage: UNK
     Route: 065
  13. OMEPRAZOLE [Concomitant]
     Active Substance: OMEPRAZOLE
     Indication: Dyspepsia
     Dosage: UNK
     Route: 065
  14. OMEPRAZOLE [Concomitant]
     Active Substance: OMEPRAZOLE
     Indication: Gastrooesophageal reflux disease
  15. NEBIVOLOL [Concomitant]
     Active Substance: NEBIVOLOL
     Indication: Hypertension
     Dosage: UNK
     Route: 065
  16. METAMIZOLE [Concomitant]
     Active Substance: METAMIZOLE
     Indication: Pain
     Dosage: UNK
     Route: 065
  17. SUGAMMADEX [Concomitant]
     Active Substance: SUGAMMADEX
     Indication: Neuromuscular blockade reversal
     Dosage: 200 MILLIGRAM; INTRAVENOUS (NOT SPECIFIED)
     Route: 042

REACTIONS (4)
  - Anticholinergic syndrome [Recovered/Resolved]
  - Nervous system disorder [Recovered/Resolved]
  - Altered state of consciousness [Recovered/Resolved]
  - Retrograde amnesia [Recovered/Resolved]
